FAERS Safety Report 19157749 (Version 3)
Quarter: 2022Q3

REPORT INFORMATION
  Report Type: Report from Study
  Country: GB (occurrence: GB)
  Receive Date: 20210420
  Receipt Date: 20220824
  Transmission Date: 20221027
  Serious: Yes (Other)
  Sender: FDA-Public Use
  Company Number: NVSC2021GB087336

PATIENT
  Sex: Female

DRUGS (1)
  1. OMNITROPE [Suspect]
     Active Substance: SOMATROPIN
     Indication: Growth hormone deficiency
     Dosage: 0.8 MG, QD
     Route: 058
     Dates: start: 20170914

REACTIONS (10)
  - Neoplasm [Unknown]
  - Neoplasm progression [Unknown]
  - Fatigue [Unknown]
  - Vitamin D decreased [Unknown]
  - Blood iron decreased [Unknown]
  - Breast pain [Unknown]
  - Malaise [Unknown]
  - Ear infection [Unknown]
  - Product supply issue [Unknown]
  - Product dose omission issue [Unknown]
